FAERS Safety Report 16836581 (Version 2)
Quarter: 2019Q3

REPORT INFORMATION
  Report Type: Spontaneous
  Country: US (occurrence: US)
  Receive Date: 20190921
  Receipt Date: 20190925
  Transmission Date: 20191005
  Serious: Yes (Death, Other)
  Sender: FDA-Public Use
  Company Number: US-AMGEN-USASP2019155545

PATIENT

DRUGS (3)
  1. DEXAMETHASONE. [Concomitant]
     Active Substance: DEXAMETHASONE
     Indication: GRAFT VERSUS HOST DISEASE
     Dosage: 4 MG FOR INITIAL CARFILZOMIB DOSE, AND 8MG FOR SUBSEQUENT DOSES
  2. CARFILZOMIB [Suspect]
     Active Substance: CARFILZOMIB
     Indication: GRAFT VERSUS HOST DISEASE
     Dosage: 20 MILLIGRAM/SQ. METER; ON DAY 1
     Route: 042
  3. CARFILZOMIB [Suspect]
     Active Substance: CARFILZOMIB
     Dosage: 36 MILLIGRAM/SQ. METER; ON DAYS 8 AND 15 (CYCLE 1); ON DAYS 1, 8, AND 15 FROM CYCLE 2-6
     Route: 042

REACTIONS (24)
  - Fall [Fatal]
  - Sepsis [Fatal]
  - Hip arthroplasty [Unknown]
  - Varices oesophageal [Unknown]
  - Drug ineffective for unapproved indication [Unknown]
  - Rhinovirus infection [Unknown]
  - Infusion related reaction [Unknown]
  - Lymphocyte count decreased [Unknown]
  - Diarrhoea [Unknown]
  - Acute kidney injury [Unknown]
  - Respiratory failure [Fatal]
  - Haemorrhage [Fatal]
  - Hepatic failure [Fatal]
  - Myositis [Unknown]
  - Pneumothorax [Unknown]
  - Pyrexia [Unknown]
  - Disease progression [Unknown]
  - Death [Fatal]
  - Cellulitis [Unknown]
  - Pneumonia [Unknown]
  - Pneumonia cryptococcal [Unknown]
  - Toxicity to various agents [Not Recovered/Not Resolved]
  - Hypoxia [Unknown]
  - Dermatitis bullous [Unknown]
